FAERS Safety Report 6458248-0 (Version None)
Quarter: 2009Q4

REPORT INFORMATION
  Report Type: 
  Country: None (occurrence: None)
  Receive Date: 20091125
  Receipt Date: 20091120
  Transmission Date: 20100525
  Serious: Yes (Other)
  Sender: FDA-Public Use
  Company Number: DE-MERCK-0911DEU00021

PATIENT
  Age: 53 Year
  Sex: Male
  Weight: 90 kg

DRUGS (8)
  1. ZETIA [Suspect]
     Indication: CORONARY ARTERY DISEASE
     Route: 048
     Dates: start: 20091013, end: 20091025
  2. ZETIA [Suspect]
     Indication: LIPID METABOLISM DISORDER
     Route: 048
     Dates: start: 20091013, end: 20091025
  3. COLESEVELAM HYDROCHLORIDE [Suspect]
     Indication: CORONARY ARTERY DISEASE
     Route: 048
     Dates: start: 20091013, end: 20091025
  4. COLESEVELAM HYDROCHLORIDE [Suspect]
     Indication: LIPID METABOLISM DISORDER
     Route: 048
     Dates: start: 20091013, end: 20091025
  5. ASPIRIN [Concomitant]
     Route: 048
     Dates: start: 20081101
  6. METOPROLOL [Concomitant]
     Route: 048
     Dates: start: 20081101
  7. RAMIPRIL [Concomitant]
     Route: 048
     Dates: start: 20081101
  8. CLOPIDOGREL BISULFATE [Concomitant]
     Route: 048
     Dates: start: 20081101

REACTIONS (2)
  - BLOOD CREATINE PHOSPHOKINASE INCREASED [None]
  - MYALGIA [None]
